FAERS Safety Report 13789482 (Version 1)
Quarter: 2017Q3

REPORT INFORMATION
  Report Type: Spontaneous
  Country: JP (occurrence: JP)
  Receive Date: 20170725
  Receipt Date: 20170725
  Transmission Date: 20171127
  Serious: Yes (Other)
  Sender: FDA-Public Use
  Company Number: JP-JNJFOC-20170713912

PATIENT

DRUGS (1)
  1. TRAMCET [Suspect]
     Active Substance: ACETAMINOPHEN\TRAMADOL
     Indication: PRODUCT USED FOR UNKNOWN INDICATION
     Route: 048

REACTIONS (10)
  - Lumbar spinal stenosis [Unknown]
  - Decreased appetite [Unknown]
  - Nausea [Unknown]
  - Constipation [Unknown]
  - Abdominal distension [Unknown]
  - Dizziness [Unknown]
  - Pruritus [Unknown]
  - Hip surgery [Unknown]
  - Hot flush [Unknown]
  - Dyspepsia [Unknown]
